FAERS Safety Report 19286124 (Version 1)
Quarter: 2021Q2

REPORT INFORMATION
  Report Type: Spontaneous
  Country: US (occurrence: US)
  Receive Date: 20210521
  Receipt Date: 20210521
  Transmission Date: 20210717
  Serious: No
  Sender: FDA-Public Use
  Company Number: US-RADIUS HEALTH INC.-2020US002228

PATIENT
  Age: 64 Year
  Sex: Female

DRUGS (1)
  1. TYMLOS [Suspect]
     Active Substance: ABALOPARATIDE
     Indication: PRODUCT USED FOR UNKNOWN INDICATION
     Dosage: 80 MCG, DAILY
     Route: 058
     Dates: start: 20200422, end: 20200709

REACTIONS (9)
  - Oedema peripheral [Unknown]
  - Blood sodium decreased [Unknown]
  - Vomiting [Unknown]
  - Abdominal pain [Unknown]
  - Alopecia [Recovering/Resolving]
  - Gingival recession [Unknown]
  - Pain in jaw [Unknown]
  - Headache [Unknown]
  - Dizziness [Unknown]

NARRATIVE: CASE EVENT DATE: 202004
